FAERS Safety Report 24605031 (Version 2)
Quarter: 2024Q4

REPORT INFORMATION
  Report Type: Spontaneous
  Country: US (occurrence: US)
  Receive Date: 20241111
  Receipt Date: 20241118
  Transmission Date: 20250115
  Serious: Yes (Other)
  Sender: BRISTOL-MYERS SQUIBB COMPANY
  Company Number: US-BRISTOL-MYERS SQUIBB COMPANY-2024-175661

PATIENT
  Age: 48 Year
  Sex: Female
  Weight: 132.9 kg

DRUGS (2)
  1. REVLIMID [Suspect]
     Active Substance: LENALIDOMIDE
     Indication: Plasma cell myeloma
     Dosage: FREQUENCY - FOR 21 DAYS.
     Route: 048
     Dates: start: 20241008, end: 20241015
  2. REVLIMID [Suspect]
     Active Substance: LENALIDOMIDE
     Dosage: FREQUENCY - 3 WEEKS ON, 1 WEEK OFF
     Route: 048

REACTIONS (2)
  - Rash [Recovering/Resolving]
  - Cardiac failure [Recovering/Resolving]
